FAERS Safety Report 8834883 (Version 1)
Quarter: 2012Q4

REPORT INFORMATION
  Report Type: 
  Country: DE (occurrence: DE)
  Receive Date: 20121011
  Receipt Date: 20121011
  Transmission Date: 20130627
  Serious: Yes (Hospitalization)
  Sender: FDA-Public Use
  Company Number: DE-BIOGENIDEC-2012BI042382

PATIENT
  Age: 49 Year
  Sex: Male
  Weight: 88 kg

DRUGS (4)
  1. AVONEX [Suspect]
     Indication: MULTIPLE SCLEROSIS
     Route: 030
     Dates: start: 20101101
  2. SIFROL [Concomitant]
     Indication: PARKINSON^S DISEASE
     Dates: start: 20091015
  3. AZILECT [Concomitant]
     Indication: PARKINSON^S DISEASE
     Dates: start: 20091015
  4. PARKINSAN [Concomitant]
     Indication: PARKINSON^S DISEASE
     Dates: start: 20091015

REACTIONS (2)
  - Optic neuritis [Recovered/Resolved]
  - Tendon rupture [Recovered/Resolved with Sequelae]
